FAERS Safety Report 7727431-6 (Version None)
Quarter: 2011Q3

REPORT INFORMATION
  Report Type: 
  Country: None (occurrence: None)
  Receive Date: 20110902
  Receipt Date: 20110830
  Transmission Date: 20111222
  Serious: Yes (Hospitalization, Other)
  Sender: FDA-Public Use
  Company Number: JP-ABBOTT-11P-087-0841757-00

PATIENT
  Sex: Male
  Weight: 56 kg

DRUGS (9)
  1. PREDNISOLONE [Concomitant]
     Route: 048
     Dates: start: 20110523, end: 20110605
  2. PREDNISOLONE [Concomitant]
     Route: 048
     Dates: start: 20110509, end: 20110522
  3. PREDNISOLONE [Concomitant]
     Indication: CROHN'S DISEASE
     Route: 048
     Dates: start: 20110328, end: 20110508
  4. REBAMIPIDE [Concomitant]
     Indication: GASTRITIS
     Route: 048
     Dates: start: 20100415, end: 20110718
  5. HUMIRA [Suspect]
     Dates: start: 20110523, end: 20110714
  6. AZATHIOPRINE [Concomitant]
     Indication: CROHN'S DISEASE
     Route: 048
     Dates: start: 20110117, end: 20110718
  7. PREDNISOLONE [Concomitant]
     Route: 048
     Dates: start: 20110606, end: 20110703
  8. HUMIRA [Suspect]
     Indication: CROHN'S DISEASE
     Dosage: (160MG)
     Route: 058
     Dates: start: 20110421, end: 20110421
  9. HUMIRA [Suspect]
     Dosage: (80MG)
     Dates: start: 20110509, end: 20110509

REACTIONS (6)
  - ABDOMINAL PAIN [None]
  - DEVICE RELATED INFECTION [None]
  - GASTROINTESTINAL ULCER [None]
  - INFECTIOUS PERITONITIS [None]
  - ASCITES [None]
  - PYREXIA [None]
